FAERS Safety Report 24288399 (Version 3)
Quarter: 2024Q4

REPORT INFORMATION
  Report Type: Report from Study
  Country: CA (occurrence: CA)
  Receive Date: 20240906
  Receipt Date: 20241007
  Transmission Date: 20250114
  Serious: Yes (Death, Other)
  Sender: HLS THERAPEUTICS
  Company Number: CA-HLS-202402167

PATIENT
  Age: 69 Year
  Sex: Female
  Weight: 77 kg

DRUGS (1)
  1. CLOZARIL [Suspect]
     Active Substance: CLOZAPINE
     Indication: Schizophrenia
     Dosage: 100 MG
     Route: 048
     Dates: start: 19960829, end: 20240630

REACTIONS (4)
  - Dyspnoea [Fatal]
  - Gastrointestinal haemorrhage [Unknown]
  - Pulmonary embolism [Fatal]
  - Respiratory distress [Fatal]

NARRATIVE: CASE EVENT DATE: 20240630
